FAERS Safety Report 6237994-8 (Version None)
Quarter: 2009Q2

REPORT INFORMATION
  Report Type: 
  Country: None (occurrence: None)
  Receive Date: 20090617
  Receipt Date: 20090617
  Transmission Date: 20091009
  Serious: Yes (Disabling)
  Sender: FDA-Public Use
  Company Number: None

PATIENT
  Sex: Female

DRUGS (2)
  1. ZOCOR [Suspect]
     Indication: BLOOD CHOLESTEROL INCREASED
     Dosage: 20MG ONCE QD
     Dates: start: 20090201, end: 20090401
  2. PRAVACHOL [Suspect]
     Indication: BLOOD CHOLESTEROL INCREASED
     Dosage: 20 MG ONCE QD
     Dates: start: 20090401, end: 20090601

REACTIONS (3)
  - DRUG INTOLERANCE [None]
  - MYALGIA [None]
  - PRODUCT SUBSTITUTION ISSUE [None]
